FAERS Safety Report 5021880-5 (Version None)
Quarter: 2006Q2

REPORT INFORMATION
  Report Type: 
  Country: None (occurrence: None)
  Receive Date: 20060609
  Receipt Date: 20060605
  Transmission Date: 20061013
  Serious: Yes (Death, Life-Threatening, Hospitalization)
  Sender: FDA-Public Use
  Company Number: ES-JNJFOC-20060600720

PATIENT
  Age: 84 Year
  Sex: Female

DRUGS (7)
  1. TAVANIC [Suspect]
     Indication: GASTROINTESTINAL DISORDER
     Route: 042
     Dates: start: 20060218, end: 20060227
  2. LACIMEN [Concomitant]
     Route: 048
     Dates: start: 20040101
  3. SEROXAT [Concomitant]
     Route: 048
     Dates: start: 20040101
  4. OMEPRAZOLE [Concomitant]
     Route: 065
     Dates: start: 20040101
  5. ADIRO [Concomitant]
     Route: 065
     Dates: start: 20040101
  6. DIANBEN [Concomitant]
     Route: 065
     Dates: start: 20040101
  7. DIAMICRON [Concomitant]
     Route: 065
     Dates: start: 20040101

REACTIONS (2)
  - HEPATITIS FULMINANT [None]
  - SEPSIS [None]
